FAERS Safety Report 24940699 (Version 1)
Quarter: 2025Q1

REPORT INFORMATION
  Report Type: Report from Study
  Country: CA (occurrence: CA)
  Receive Date: 20250207
  Receipt Date: 20250207
  Transmission Date: 20250409
  Serious: Yes (Hospitalization, Other)
  Sender: TEVA
  Company Number: CA-TEVA-VS-3295775

PATIENT
  Age: 65 Year
  Sex: Female
  Weight: 44 kg

DRUGS (3)
  1. PREDNISONE [Suspect]
     Active Substance: PREDNISONE
     Indication: Polyarthritis
     Route: 065
  2. ENBREL [Suspect]
     Active Substance: ETANERCEPT
     Indication: Polyarthritis
     Route: 058
  3. ENBREL [Suspect]
     Active Substance: ETANERCEPT
     Indication: Polyarthritis
     Route: 058

REACTIONS (10)
  - Polyarthritis [Unknown]
  - Foot deformity [Unknown]
  - Fibromyalgia [Unknown]
  - Increased bronchial secretion [Unknown]
  - Weight decreased [Unknown]
  - Hyperaesthesia [Unknown]
  - Influenza [Unknown]
  - Pneumonia [Unknown]
  - Rheumatoid arthritis [Unknown]
  - Unevaluable event [Unknown]
